FAERS Safety Report 4657246-7 (Version None)
Quarter: 2005Q2

REPORT INFORMATION
  Report Type: 
  Country: None (occurrence: None)
  Receive Date: 20050506
  Receipt Date: 20050426
  Transmission Date: 20051028
  Serious: Yes (Hospitalization, Other)
  Sender: FDA-Public Use
  Company Number: 2005018400

PATIENT
  Sex: Male

DRUGS (4)
  1. BEXTRA [Suspect]
     Indication: BURSITIS
     Dosage: 20 MG, ORAL
     Route: 048
     Dates: start: 20041112, end: 20041119
  2. LISINOPRIL [Concomitant]
  3. ATORVASTATIN CALCIUM [Concomitant]
  4. ASPIRIN [Concomitant]

REACTIONS (1)
  - ACUTE MYOCARDIAL INFARCTION [None]
